FAERS Safety Report 12666175 (Version 1)
Quarter: 2016Q3

REPORT INFORMATION
  Report Type: Spontaneous
  Country: US (occurrence: US)
  Receive Date: 20160818
  Receipt Date: 20160818
  Transmission Date: 20161109
  Serious: No
  Sender: FDA-Public Use
  Company Number: US-JAZZ-2016-US-005765

PATIENT
  Sex: Female

DRUGS (89)
  1. XYREM [Suspect]
     Active Substance: SODIUM OXYBATE
     Dosage: 4.5 G, BID
     Route: 048
     Dates: start: 201601, end: 2016
  2. CAMBIA [Concomitant]
     Active Substance: DICLOFENAC POTASSIUM
  3. METHYLERGONOVINE MALEATE. [Concomitant]
     Active Substance: METHYLERGONOVINE MALEATE
  4. PHENERGAN [Concomitant]
     Active Substance: PROMETHAZINE HYDROCHLORIDE
  5. RESTASIS [Concomitant]
     Active Substance: CYCLOSPORINE
  6. TIGAN [Concomitant]
     Active Substance: TRIMETHOBENZAMIDE HYDROCHLORIDE
  7. TRAZODONE HYDROCHLORIDE. [Concomitant]
     Active Substance: TRAZODONE HYDROCHLORIDE
  8. TUSSIONEX PENNKINETIC [Concomitant]
     Active Substance: CHLORPHENIRAMINE\HYDROCODONE
  9. XYREM [Suspect]
     Active Substance: SODIUM OXYBATE
     Indication: NARCOLEPSY
     Dosage: 2.25 G, BID
     Route: 048
     Dates: start: 201207, end: 201208
  10. DIFLUCAN [Concomitant]
     Active Substance: FLUCONAZOLE
  11. CYPROHEPTADINE HCL [Concomitant]
     Active Substance: CYPROHEPTADINE HYDROCHLORIDE
  12. KLONOPIN [Concomitant]
     Active Substance: CLONAZEPAM
  13. TIMOLOL. [Concomitant]
     Active Substance: TIMOLOL
  14. VALIUM [Concomitant]
     Active Substance: DIAZEPAM
  15. WELLBUTRIN [Concomitant]
     Active Substance: BUPROPION HYDROCHLORIDE
  16. ZOLOFT [Concomitant]
     Active Substance: SERTRALINE HYDROCHLORIDE
  17. XOPENEX HFA [Concomitant]
     Active Substance: LEVALBUTEROL TARTRATE
  18. SINGULAIR [Concomitant]
     Active Substance: MONTELUKAST SODIUM
  19. AMBIEN [Concomitant]
     Active Substance: ZOLPIDEM TARTRATE
  20. LAMICTAL [Concomitant]
     Active Substance: LAMOTRIGINE
  21. NEURPATH B [Concomitant]
  22. PROTONIX [Concomitant]
     Active Substance: PANTOPRAZOLE SODIUM
  23. XOPENEX [Concomitant]
     Active Substance: LEVALBUTEROL HYDROCHLORIDE
  24. XYREM [Suspect]
     Active Substance: SODIUM OXYBATE
     Dosage: DOSE ADJUSTMENT
     Route: 048
  25. XYREM [Suspect]
     Active Substance: SODIUM OXYBATE
     Dosage: 3GM ONCE NIGHTLY EVERY OTHER NIGHT
  26. EFFEXOR [Concomitant]
     Active Substance: VENLAFAXINE HYDROCHLORIDE
  27. LYRICA [Concomitant]
     Active Substance: PREGABALIN
  28. MIGRANAL [Concomitant]
     Active Substance: DIHYDROERGOTAMINE MESYLATE
  29. SONATA [Concomitant]
     Active Substance: ZALEPLON
  30. TRILEPTAL [Concomitant]
     Active Substance: OXCARBAZEPINE
  31. VERAPAMIL [Concomitant]
     Active Substance: VERAPAMIL HYDROCHLORIDE
  32. AMOXICILLIN. [Concomitant]
     Active Substance: AMOXICILLIN
  33. NUVIGIL [Concomitant]
     Active Substance: ARMODAFINIL
  34. PROVIGIL [Concomitant]
     Active Substance: MODAFINIL
  35. ZOMIG [Concomitant]
     Active Substance: ZOLMITRIPTAN
  36. ABILIFY [Concomitant]
     Active Substance: ARIPIPRAZOLE
  37. ADDERALL [Concomitant]
     Active Substance: AMPHETAMINE ASPARTATE\AMPHETAMINE SULFATE\DEXTROAMPHETAMINE SACCHARATE\DEXTROAMPHETAMINE SULFATE
  38. AZELASTINE [Concomitant]
     Active Substance: AZELASTINE
  39. BOTOX [Concomitant]
     Active Substance: ONABOTULINUMTOXINA
  40. CONCERTA [Concomitant]
     Active Substance: METHYLPHENIDATE HYDROCHLORIDE
  41. DOXEPIN [Concomitant]
     Active Substance: DOXEPIN
  42. FIORICET [Concomitant]
     Active Substance: ACETAMINOPHEN\BUTALBITAL\CAFFEINE
  43. FOCALIN [Concomitant]
     Active Substance: DEXMETHYLPHENIDATE HYDROCHLORIDE
  44. HYDROXYZINE [Concomitant]
     Active Substance: HYDROXYZINE\HYDROXYZINE HYDROCHLORIDE
  45. KEPPRA [Concomitant]
     Active Substance: LEVETIRACETAM
  46. NEURONTIN [Concomitant]
     Active Substance: GABAPENTIN
  47. PERCOCET [Concomitant]
     Active Substance: ACETAMINOPHEN\OXYCODONE HYDROCHLORIDE
  48. ROZEREM [Concomitant]
     Active Substance: RAMELTEON
  49. TOPAMAX [Concomitant]
     Active Substance: TOPIRAMATE
  50. MAXAIR [Concomitant]
     Active Substance: PIRBUTEROL ACETATE
  51. DHE 45 [Concomitant]
  52. MARINOL [Concomitant]
     Active Substance: DRONABINOL
  53. IRON [Concomitant]
     Active Substance: IRON
  54. XANAX [Concomitant]
     Active Substance: ALPRAZOLAM
  55. ZOFRAN [Concomitant]
     Active Substance: ONDANSETRON HYDROCHLORIDE
  56. ACETAZOLAMIDE. [Concomitant]
     Active Substance: ACETAZOLAMIDE
  57. AMITRIPTYLINE HCL [Concomitant]
     Active Substance: AMITRIPTYLINE
  58. FLAXSEED [Concomitant]
     Active Substance: FLAX SEED
  59. RELPAX [Concomitant]
     Active Substance: ELETRIPTAN HYDROBROMIDE
  60. REMERON [Concomitant]
     Active Substance: MIRTAZAPINE
  61. VANOS [Concomitant]
     Active Substance: FLUOCINONIDE
  62. DILAUDID [Concomitant]
     Active Substance: HYDROMORPHONE HYDROCHLORIDE
  63. NAPROXEN. [Concomitant]
     Active Substance: NAPROXEN
  64. SONATA [Concomitant]
     Active Substance: ZALEPLON
  65. NASACORT [Concomitant]
     Active Substance: TRIAMCINOLONE ACETONIDE
  66. IMITREX [Concomitant]
     Active Substance: SUMATRIPTAN SUCCINATE
  67. LEXAPRO [Concomitant]
     Active Substance: ESCITALOPRAM OXALATE
  68. LUNESTA [Concomitant]
     Active Substance: ESZOPICLONE
  69. NAMENDA [Concomitant]
     Active Substance: MEMANTINE HYDROCHLORIDE
  70. TEMAZEPAM. [Concomitant]
     Active Substance: TEMAZEPAM
  71. TYLENOL WITH CODEINE [Concomitant]
     Active Substance: ACETAMINOPHEN\CODEINE PHOSPHATE
  72. CATAPRES [Concomitant]
     Active Substance: CLONIDINE HYDROCHLORIDE
  73. KYTRIL [Concomitant]
     Active Substance: GRANISETRON HYDROCHLORIDE
  74. METANX [Concomitant]
     Active Substance: LEVOMEFOLATE CALCIUM\METHYLCOBALAMIN\PYRIDOXAL PHOSPHATE ANHYDROUS
  75. XYREM [Suspect]
     Active Substance: SODIUM OXYBATE
     Dosage: 4.5 G, BID
     Route: 048
     Dates: start: 2012, end: 2014
  76. ADVIL [Concomitant]
     Active Substance: IBUPROFEN
  77. CYMBALTA [Concomitant]
     Active Substance: DULOXETINE HYDROCHLORIDE
  78. HYLATOPICPLUS [Concomitant]
  79. LITHIUM CARBONATE. [Concomitant]
     Active Substance: LITHIUM CARBONATE
  80. MAXALT [Concomitant]
     Active Substance: RIZATRIPTAN BENZOATE
  81. NASONEX [Concomitant]
     Active Substance: MOMETASONE FUROATE
  82. PROPRANOLOL [Concomitant]
     Active Substance: PROPRANOLOL\PROPRANOLOL HYDROCHLORIDE
  83. RITALIN [Concomitant]
     Active Substance: METHYLPHENIDATE HYDROCHLORIDE
  84. STRATTERA [Concomitant]
     Active Substance: ATOMOXETINE HYDROCHLORIDE
  85. FROVA [Concomitant]
     Active Substance: FROVATRIPTAN SUCCINATE
  86. ATIVAN [Concomitant]
     Active Substance: LORAZEPAM
  87. MULTIVITAMINS [Concomitant]
     Active Substance: VITAMINS
  88. SPRIX [Concomitant]
     Active Substance: KETOROLAC TROMETHAMINE
  89. ADDERALL XR [Concomitant]
     Active Substance: AMPHETAMINE ASPARTATE\AMPHETAMINE SULFATE\DEXTROAMPHETAMINE SACCHARATE\DEXTROAMPHETAMINE SULFATE

REACTIONS (15)
  - Fatigue [Unknown]
  - Migraine [Unknown]
  - Unevaluable event [Unknown]
  - Dyspnoea [Unknown]
  - Nervousness [Unknown]
  - Product taste abnormal [Unknown]
  - Sinusitis [Unknown]
  - Dry eye [Unknown]
  - Cough [Unknown]
  - Immune system disorder [Unknown]
  - Emotional disorder [Unknown]
  - Diarrhoea [Unknown]
  - Feeling abnormal [Unknown]
  - Drug intolerance [Unknown]
  - Respiratory tract infection [Unknown]

NARRATIVE: CASE EVENT DATE: 2016
